FAERS Safety Report 6433061-9 (Version None)
Quarter: 2009Q4

REPORT INFORMATION
  Report Type: 
  Country: None (occurrence: None)
  Receive Date: 20091105
  Receipt Date: 20091023
  Transmission Date: 20100525
  Serious: Yes (Hospitalization)
  Sender: FDA-Public Use
  Company Number: ENT 2009-0188

PATIENT
  Age: 67 Year
  Sex: Male

DRUGS (8)
  1. COMTAN [Suspect]
     Indication: DRUG EFFECT DECREASED
     Dosage: 400 MG , ORAL
     Route: 048
     Dates: start: 20081007
  2. COMTAN [Suspect]
     Indication: PARKINSON'S DISEASE
     Dosage: 400 MG , ORAL
     Route: 048
     Dates: start: 20081007
  3. CARBIDOPA AND LEVODOPA [Concomitant]
  4. MADOPAR [Concomitant]
  5. SYMMETREL [Concomitant]
  6. BI-STEROL [Concomitant]
  7. JUVELA NICOTINATE [Concomitant]
  8. SELBEX [Concomitant]

REACTIONS (5)
  - BLOOD ALKALINE PHOSPHATASE INCREASED [None]
  - BLOOD CREATINE PHOSPHOKINASE INCREASED [None]
  - CARDIAC FAILURE [None]
  - FALL [None]
  - HYPOGLYCAEMIC UNCONSCIOUSNESS [None]
